FAERS Safety Report 6136478-5 (Version None)
Quarter: 2009Q1

REPORT INFORMATION
  Report Type: 
  Country: None (occurrence: None)
  Receive Date: 20090217
  Receipt Date: 20080520
  Transmission Date: 20090719
  Serious: No
  Sender: FDA-Public Use
  Company Number: AEUSA200800122

PATIENT
  Age: 58 Year
  Sex: Female

DRUGS (4)
  1. PROLASTIN [Suspect]
     Indication: ALPHA-1 ANTI-TRYPSIN DEFICIENCY
     Dosage: QW; IV
     Route: 042
     Dates: start: 20070901
  2. FORTICAL (CALCITONIN NASAL SPRAY) [Concomitant]
  3. PROCARDIA [Concomitant]
  4. PREMARIN [Concomitant]

REACTIONS (1)
  - URTICARIA [None]
